FAERS Safety Report 8358761-5 (Version None)
Quarter: 2012Q2

REPORT INFORMATION
  Report Type: 
  Country: None (occurrence: None)
  Receive Date: 20120514
  Receipt Date: 20120507
  Transmission Date: 20120825
  Serious: Yes (Hospitalization, Other)
  Sender: FDA-Public Use
  Company Number: US-BAYER-2011-004392

PATIENT
  Age: 56 Year
  Sex: Male

DRUGS (4)
  1. BETASERON [Suspect]
     Indication: RELAPSING-REMITTING MULTIPLE SCLEROSIS
     Dosage: 0.25 MG, UNK
     Route: 058
  2. FLOMAX [Concomitant]
  3. LEVAQUIN [Concomitant]
  4. ALCOWIPES [Suspect]

REACTIONS (3)
  - INJECTION SITE CELLULITIS [None]
  - SEPSIS [None]
  - TREMOR [None]
